FAERS Safety Report 18230996 (Version 1)
Quarter: 2020Q3

REPORT INFORMATION
  Report Type: Spontaneous
  Country: US (occurrence: US)
  Receive Date: 20200904
  Receipt Date: 20200904
  Transmission Date: 20201103
  Serious: No
  Sender: FDA-Public Use
  Company Number: US-HORIZON-RAV-0286-2020

PATIENT
  Age: 9 Year
  Sex: Female

DRUGS (1)
  1. RAVICTI [Suspect]
     Active Substance: GLYCEROL PHENYLBUTYRATE
     Indication: PRODUCT USED FOR UNKNOWN INDICATION
     Dosage: 3ML BY MOUTH THREE TIMES DAILY WITH MEALS
     Route: 048

REACTIONS (5)
  - Feeling abnormal [Unknown]
  - Frequent bowel movements [Unknown]
  - Decreased appetite [Unknown]
  - Intentional product use issue [Unknown]
  - Unevaluable event [Unknown]
